FAERS Safety Report 10375932 (Version 1)
Quarter: 2014Q3

REPORT INFORMATION
  Report Type: Spontaneous
  Country: DE (occurrence: DE)
  Receive Date: 20140811
  Receipt Date: 20140811
  Transmission Date: 20150326
  Serious: Yes (Hospitalization, Other)
  Sender: FDA-Public Use
  Company Number: DE-ACTELION-A-CH2014-103225

PATIENT
  Age: 64 Year

DRUGS (1)
  1. OPSUMIT [Suspect]
     Active Substance: MACITENTAN
     Indication: PULMONARY ARTERIAL HYPERTENSION
     Dosage: 10 MG, QD
     Route: 048
     Dates: end: 20140530

REACTIONS (3)
  - White blood cell count decreased [Recovered/Resolved]
  - Pancytopenia [Recovered/Resolved]
  - Haemoglobin decreased [Recovered/Resolved]
